FAERS Safety Report 5613408-3 (Version None)
Quarter: 2008Q1

REPORT INFORMATION
  Report Type: 
  Country: None (occurrence: None)
  Receive Date: 20080129
  Receipt Date: 20080114
  Transmission Date: 20080703
  Serious: Yes (Hospitalization)
  Sender: FDA-Public Use
  Company Number: 2008MB000006

PATIENT
  Age: 2 Year
  Sex: Male

DRUGS (3)
  1. KEFLEX POWDER FOR SUSPENSION (CEPHALEXIN POWDER) [Suspect]
     Indication: CELLULITIS ORBITAL
     Dosage: PO
     Route: 048
  2. TOBRAMYCIN [Concomitant]
  3. DEXAMETHASONE TAB [Concomitant]

REACTIONS (9)
  - ACUTE SINUSITIS [None]
  - BLEPHARITIS [None]
  - CONDITION AGGRAVATED [None]
  - CONJUNCTIVAL DISORDER [None]
  - CONJUNCTIVAL OEDEMA [None]
  - EXOPHTHALMOS [None]
  - EYE DISORDER [None]
  - EYE MOVEMENT DISORDER [None]
  - POST PROCEDURAL COMPLICATION [None]
